FAERS Safety Report 17131342 (Version 3)
Quarter: 2022Q2

REPORT INFORMATION
  Report Type: Report from Study
  Country: JP (occurrence: JP)
  Receive Date: 20191209
  Receipt Date: 20220401
  Transmission Date: 20220721
  Serious: Yes (Other)
  Sender: FDA-Public Use
  Company Number: JP-KYOWAKIRIN-2019AKK019015

PATIENT
  Age: 77 Year
  Sex: Male

DRUGS (1)
  1. DARBEPOETIN ALFA [Suspect]
     Active Substance: DARBEPOETIN ALFA
     Indication: Myelodysplastic syndrome
     Dosage: 240 MICROGRAM, QWK
     Route: 058
     Dates: start: 20170804, end: 20170817

REACTIONS (1)
  - Blast cell count increased [Not Recovered/Not Resolved]

NARRATIVE: CASE EVENT DATE: 20170831
